FAERS Safety Report 6840831-1 (Version None)
Quarter: 2010Q3

REPORT INFORMATION
  Report Type: 
  Country: None (occurrence: None)
  Receive Date: 20100709
  Receipt Date: 20100629
  Transmission Date: 20110219
  Serious: Yes (Life-Threatening, Hospitalization, Other)
  Sender: FDA-Public Use
  Company Number: CM10-0024

PATIENT
  Sex: Female

DRUGS (4)
  1. PHYTONADIONE [Suspect]
     Dosage: 1MG/IM
     Route: 030
     Dates: start: 20100626
  2. PHYTONADIONE [Suspect]
  3. HEPATITIS B VACCINATION [Concomitant]
  4. ERYTHROMYCIN [Concomitant]

REACTIONS (3)
  - CARDIAC ARREST NEONATAL [None]
  - CONVULSION NEONATAL [None]
  - INFANTILE APNOEIC ATTACK [None]
